FAERS Safety Report 10710522 (Version 1)
Quarter: 2015Q1

REPORT INFORMATION
  Report Type: Spontaneous
  Country: US (occurrence: None)
  Receive Date: 20150112
  Receipt Date: 20150112
  Transmission Date: 20150721
  Serious: Yes (Life-Threatening, Other)
  Sender: FDA-Public Use
  Company Number: FK201406526

PATIENT
  Age: 08 Week
  Sex: Male

DRUGS (3)
  1. ANAKINRA (ANAKINRA) [Concomitant]
     Active Substance: ANAKINRA
  2. DEXAMETHASONE INJECTION (MANUFACTURER UNKNOWN) (DEXAMETHASONE SODIUM PHOSPHATE) (DEXAMETHASONE SODIUM PHOSPHATE) [Suspect]
     Active Substance: DEXAMETHASONE
     Indication: IMMUNOSUPPRESSANT DRUG THERAPY
  3. CICLOSPORIN (CICLOSPORIN) [Suspect]
     Active Substance: CYCLOSPORINE
     Indication: IMMUNOSUPPRESSANT DRUG THERAPY

REACTIONS (6)
  - Septic shock [None]
  - Encephalopathy [None]
  - Multi-organ failure [None]
  - Chronic granulomatous disease [None]
  - Systemic candida [None]
  - Encephalitis fungal [None]
